FAERS Safety Report 6017006-1 (Version None)
Quarter: 2008Q4

REPORT INFORMATION
  Report Type: 
  Country: None (occurrence: None)
  Receive Date: 20081223
  Receipt Date: 20081210
  Transmission Date: 20090506
  Serious: Yes (Hospitalization)
  Sender: FDA-Public Use
  Company Number: BR-ROCHE-602455

PATIENT
  Age: 56 Year
  Sex: Female

DRUGS (1)
  1. BONIVA [Suspect]
     Indication: OSTEOPOROSIS
     Route: 048
     Dates: start: 20081101, end: 20081201

REACTIONS (7)
  - ARTHRALGIA [None]
  - DIARRHOEA [None]
  - DYSPNOEA [None]
  - INFLUENZA LIKE ILLNESS [None]
  - MYALGIA [None]
  - OEDEMA [None]
  - RASH [None]
